FAERS Safety Report 18671081 (Version 2)
Quarter: 2022Q1

REPORT INFORMATION
  Report Type: Spontaneous
  Country: US (occurrence: US)
  Receive Date: 20201228
  Receipt Date: 20220104
  Transmission Date: 20220423
  Serious: No
  Sender: FDA-Public Use
  Company Number: US-COOPERSURGICAL, INC.-US-2020CPS002304

PATIENT
  Age: 42 Year
  Sex: Female
  Weight: 57.143 kg

DRUGS (2)
  1. PARAGARD T 380A [Suspect]
     Active Substance: COPPER
     Indication: Contraception
     Dosage: UNK
     Route: 015
     Dates: start: 20200407, end: 20200915
  2. VITAMINS                           /00067501/ [Concomitant]
     Indication: Nutritional supplementation
     Route: 065

REACTIONS (3)
  - Vulvovaginal discomfort [Unknown]
  - Pelvic pain [Unknown]
  - Device expulsion [Recovered/Resolved]

NARRATIVE: CASE EVENT DATE: 20200901
